FAERS Safety Report 14515731 (Version 1)
Quarter: 2018Q1

REPORT INFORMATION
  Report Type: Spontaneous
  Country: US (occurrence: US)
  Receive Date: 20180211
  Receipt Date: 20180211
  Transmission Date: 20180509
  Serious: No
  Sender: FDA-Public Use
  Company Number: US-TEVA-2018-US-859030

PATIENT
  Age: 48 Year
  Sex: Female

DRUGS (13)
  1. DIPHENHIST [Concomitant]
     Active Substance: DIPHENHYDRAMINE HYDROCHLORIDE
  2. HALDOL [Concomitant]
     Active Substance: HALOPERIDOL
  3. ONDANSETRON HCL [Concomitant]
     Active Substance: ONDANSETRON HYDROCHLORIDE
  4. MESYLATE [Concomitant]
  5. NYSTATIN. [Concomitant]
     Active Substance: NYSTATIN
  6. REXULTI [Concomitant]
     Active Substance: BREXPIPRAZOLE
  7. AUSTEDO [Suspect]
     Active Substance: DEUTETRABENAZINE
     Indication: SCHIZOAFFECTIVE DISORDER
     Dosage: 18 MILLIGRAM DAILY;
     Route: 048
     Dates: start: 20180116
  8. BENZTROPINE. [Concomitant]
     Active Substance: BENZTROPINE
  9. DIPHENHYDRAMINE HCL [Concomitant]
     Active Substance: DIPHENHYDRAMINE HYDROCHLORIDE
  10. VENTOLIN HFA [Concomitant]
     Active Substance: ALBUTEROL SULFATE
  11. DEPAKOTE [Concomitant]
     Active Substance: DIVALPROEX SODIUM
  12. ACETAMINOPHEN. [Concomitant]
     Active Substance: ACETAMINOPHEN
  13. PROPRANOLOL HCL [Concomitant]
     Active Substance: PROPRANOLOL HYDROCHLORIDE

REACTIONS (2)
  - Mood swings [Unknown]
  - Off label use [Unknown]

NARRATIVE: CASE EVENT DATE: 201801
